FAERS Safety Report 4787532-1 (Version None)
Quarter: 2005Q4

REPORT INFORMATION
  Report Type: 
  Country: None (occurrence: None)
  Receive Date: 20051003
  Receipt Date: 20050921
  Transmission Date: 20060501
  Serious: Yes (Hospitalization, Other)
  Sender: FDA-Public Use
  Company Number: HQWYE679224NOV04

PATIENT
  Age: 45 Year
  Sex: Male
  Weight: 75.9 kg

DRUGS (10)
  1. RAPAMUNE [Suspect]
     Indication: PROPHYLAXIS AGAINST TRANSPLANT REJECTION
     Dosage: 5 MG 1X PER 1 DAY ORAL
     Route: 048
     Dates: start: 20040917, end: 20041119
  2. ZOCOR [Concomitant]
  3. METOPROLOL [Concomitant]
  4. PRILOSEC [Concomitant]
  5. VALCYTE [Concomitant]
  6. SEPTRA DS [Concomitant]
  7. CELLCEPT [Concomitant]
  8. PREDNISONE [Concomitant]
  9. NPH INSULIN [Concomitant]
  10. PROCARDIA XL [Concomitant]

REACTIONS (6)
  - BLOOD PRESSURE INCREASED [None]
  - DRUG INEFFECTIVE [None]
  - KIDNEY TRANSPLANT REJECTION [None]
  - POST PROCEDURAL HAEMATOMA [None]
  - RED BLOOD CELL COUNT DECREASED [None]
  - WHITE BLOOD CELL COUNT DECREASED [None]
